FAERS Safety Report 10103462 (Version 1)
Quarter: 2014Q2

REPORT INFORMATION
  Report Type: Spontaneous
  Country: GB (occurrence: GB)
  Receive Date: 20140424
  Receipt Date: 20140424
  Transmission Date: 20141212
  Serious: Yes (Hospitalization, Other)
  Sender: FDA-Public Use
  Company Number: GB-BAYER-2014-056578

PATIENT
  Age: 65 Year
  Sex: Male

DRUGS (14)
  1. ACETYLSALICYLIC ACID (} 100 MG) [Suspect]
     Dosage: UNK
  2. ALISKIREN [Suspect]
     Indication: CARDIOVASCULAR DISORDER
     Dosage: UNK
     Route: 048
     Dates: start: 20090512, end: 20091112
  3. ALISKIREN [Suspect]
     Indication: CARDIOVASCULAR DISORDER
     Dosage: UNK
     Route: 048
     Dates: start: 20091117
  4. METFORMIN [Suspect]
     Dosage: UNK
  5. ALLOPURINOL [Concomitant]
     Dosage: UNK
  6. ATENOLOL [Concomitant]
     Dosage: UNK
  7. ATORVASTATIN [Concomitant]
  8. EZETIMIBE [Concomitant]
  9. FENOFIBRATE [Concomitant]
     Dosage: UNK
  10. INSULIN GLARGINE [Concomitant]
  11. NIFEDIPINE [Concomitant]
  12. NOVORAPID [Concomitant]
  13. RAMIPRIL [Concomitant]
  14. SILDENAFIL [Concomitant]

REACTIONS (17)
  - Haemorrhage [Recovering/Resolving]
  - Renal failure chronic [Recovering/Resolving]
  - Blood creatinine increased [Recovering/Resolving]
  - Duodenitis [Recovering/Resolving]
  - Dysplasia [Unknown]
  - Malaise [Unknown]
  - Gastrointestinal haemorrhage [Unknown]
  - Gastrointestinal inflammation [Unknown]
  - Haematocrit decreased [Unknown]
  - Haemoglobin decreased [Unknown]
  - Lethargy [Recovering/Resolving]
  - Pallor [Recovering/Resolving]
  - Melaena [Recovering/Resolving]
  - Oesophagitis [Recovering/Resolving]
  - Red blood cell count decreased [Unknown]
  - Renal impairment [Recovering/Resolving]
  - Adenoma benign [Recovering/Resolving]
